FAERS Safety Report 5460918-8 (Version None)
Quarter: 2007Q3

REPORT INFORMATION
  Report Type: 
  Country: None (occurrence: None)
  Receive Date: 20070810
  Receipt Date: 20070329
  Transmission Date: 20080115
  Serious: No
  Sender: FDA-Public Use
  Company Number: 200710519BWH

PATIENT
  Age: 63 Year
  Sex: Male

DRUGS (4)
  1. TRASYLOL [Suspect]
     Indication: CORONARY ARTERY BYPASS
     Dosage: 200 ML, ONCE, INTRAVENOUS; 20 ML, ONCE, INTRAVENOUS
     Route: 042
     Dates: start: 20070205
  2. TRASYLOL [Suspect]
     Indication: MITRAL VALVE REPAIR
     Dosage: 200 ML, ONCE, INTRAVENOUS; 20 ML, ONCE, INTRAVENOUS
     Route: 042
     Dates: start: 20070205
  3. TRASYLOL [Suspect]
     Indication: CORONARY ARTERY BYPASS
     Dosage: 200 ML, ONCE, INTRAVENOUS; 20 ML, ONCE, INTRAVENOUS
     Route: 042
     Dates: start: 20070205
  4. TRASYLOL [Suspect]
     Indication: MITRAL VALVE REPAIR
     Dosage: 200 ML, ONCE, INTRAVENOUS; 20 ML, ONCE, INTRAVENOUS
     Route: 042
     Dates: start: 20070205

REACTIONS (1)
  - BLOOD CREATININE INCREASED [None]
